FAERS Safety Report 5621595-6 (Version None)
Quarter: 2008Q1

REPORT INFORMATION
  Report Type: 
  Country: None (occurrence: None)
  Receive Date: 20080211
  Receipt Date: 20080201
  Transmission Date: 20080703
  Serious: Yes (Other)
  Sender: FDA-Public Use
  Company Number: PHBS2008JP00696

PATIENT
  Age: 85 Year
  Sex: Female

DRUGS (9)
  1. STARSIS [Suspect]
     Indication: DIABETES MELLITUS
     Dosage: 270MG/DAY
     Route: 048
     Dates: end: 20071212
  2. GASTER [Suspect]
  3. MUCOSTA [Concomitant]
     Dosage: UNK, UNK
  4. GLAKAY [Concomitant]
     Dosage: UNK, UNK
  5. ROCALTROL [Concomitant]
     Dosage: UNK, UNK
  6. FLOMOX [Concomitant]
     Dosage: UNK, UNK
  7. UNASYN [Suspect]
     Dosage: UNK, UNK
     Dates: start: 20071214, end: 20071215
  8. AMLODIPINE BESYLATE [Concomitant]
     Dosage: UNK, UNK
  9. INSULIN [Suspect]
     Dosage: UNK, UNK

REACTIONS (7)
  - BLOOD ALKALINE PHOSPHATASE INCREASED [None]
  - BLOOD POTASSIUM INCREASED [None]
  - BLOOD UREA INCREASED [None]
  - C-REACTIVE PROTEIN INCREASED [None]
  - HYPERKALAEMIA [None]
  - LIVER DISORDER [None]
  - SURGERY [None]
